FAERS Safety Report 8584891-9 (Version None)
Quarter: 2012Q3

REPORT INFORMATION
  Report Type: 
  Country: None (occurrence: None)
  Receive Date: 20120810
  Receipt Date: 20120730
  Transmission Date: 20120928
  Serious: Yes (Other)
  Sender: FDA-Public Use
  Company Number: JP-JNJFOC-20120708681

PATIENT
  Age: 4 Decade
  Sex: Female

DRUGS (2)
  1. REMICADE [Suspect]
     Indication: CROHN'S DISEASE
     Dosage: SIXTH DOSE
     Route: 042
  2. REMICADE [Suspect]
     Route: 042

REACTIONS (2)
  - ARTHRITIS [None]
  - AUTOANTIBODY POSITIVE [None]
